FAERS Safety Report 10648245 (Version 1)
Quarter: 2014Q4

REPORT INFORMATION
  Report Type: Spontaneous
  Country: GB (occurrence: GB)
  Receive Date: 20141212
  Receipt Date: 20141212
  Transmission Date: 20150529
  Serious: Yes (Hospitalization, Other)
  Sender: FDA-Public Use
  Company Number: GB-TEVA-527541ISR

PATIENT
  Sex: Male

DRUGS (8)
  1. BACLOFEN. [Suspect]
     Active Substance: BACLOFEN
     Indication: ALCOHOLISM
     Dosage: 30 MILLIGRAM DAILY;
     Route: 048
     Dates: start: 20141114, end: 20141120
  2. BUSCOPAN [Concomitant]
     Active Substance: BUTYLSCOPOLAMINE BROMIDE
     Dosage: 80 MILLIGRAM DAILY;
     Route: 048
  3. VITAMIN B COMPLEX [Concomitant]
     Active Substance: CYANOCOBALAMIN\DEXPANTHENOL\NIACINAMIDE\PYRIDOXINE HYDROCHLORIDE\RIBOFLAVIN 5^-PHOSPHATE SODIUM\THIAMINE HYDROCHLORIDE\VITAMIN B COMPLEX
     Indication: ALCOHOL ABUSE
     Dosage: 3 DOSAGE FORMS DAILY;
     Route: 048
  4. CANDESARTAN [Concomitant]
     Active Substance: CANDESARTAN
     Indication: HYPERTENSION
     Dosage: 16 MILLIGRAM DAILY;
     Route: 048
  5. LORAZEPAM. [Concomitant]
     Active Substance: LORAZEPAM
     Dosage: 1 MILLIGRAM DAILY;
     Route: 048
  6. VENLAFAXINE [Concomitant]
     Active Substance: VENLAFAXINE HYDROCHLORIDE
     Indication: DEPRESSION
     Dosage: 150 MILLIGRAM DAILY;
     Route: 048
  7. THIAMINE [Concomitant]
     Active Substance: THIAMINE
     Indication: ALCOHOL ABUSE
     Dosage: 300 MILLIGRAM DAILY;
     Route: 048
  8. TRAZODONE [Concomitant]
     Active Substance: TRAZODONE HYDROCHLORIDE
     Indication: DEPRESSION
     Dosage: 75 MILLIGRAM DAILY; TAKEN AT NIGHT.
     Route: 048
     Dates: end: 20141103

REACTIONS (1)
  - Confusional state [Not Recovered/Not Resolved]
